FAERS Safety Report 9539212 (Version 1)
Quarter: 2013Q2

REPORT INFORMATION
  Report Type: Spontaneous
  Country: US (occurrence: None)
  Receive Date: 20130507
  Receipt Date: 20130507
  Transmission Date: 20140414
  Serious: No
  Sender: FDA-Public Use
  Company Number: PHEH2013US003355

PATIENT
  Sex: 0

DRUGS (1)
  1. AFINITOR [Suspect]

REACTIONS (2)
  - Rash [None]
  - Pruritus [None]
